FAERS Safety Report 10716659 (Version 1)
Quarter: 2015Q1

REPORT INFORMATION
  Report Type: Spontaneous
  Country: US (occurrence: None)
  Receive Date: 20150115
  Receipt Date: 20150115
  Transmission Date: 20150721
  Serious: Yes (Life-Threatening, Hospitalization, Other)
  Sender: FDA-Public Use
  Company Number: None

PATIENT
  Age: 42 Year
  Sex: Female
  Weight: 130.18 kg

DRUGS (1)
  1. MIRENA [Suspect]
     Active Substance: LEVONORGESTREL
     Indication: PROPHYLAXIS
     Dosage: CONTINUOUSE IUD

REACTIONS (11)
  - Muscle spasms [None]
  - Fatigue [None]
  - Somnolence [None]
  - Depression [None]
  - Feeling abnormal [None]
  - Haemorrhage [None]
  - Dysarthria [None]
  - Menorrhagia [None]
  - Gait disturbance [None]
  - Crying [None]
  - Suicidal ideation [None]

NARRATIVE: CASE EVENT DATE: 20150109
